FAERS Safety Report 4328498-8 (Version None)
Quarter: 2004Q1

REPORT INFORMATION
  Report Type: 
  Country: None (occurrence: None)
  Receive Date: 20040331
  Receipt Date: 20040206
  Transmission Date: 20041129
  Serious: Yes (Other)
  Sender: FDA-Public Use
  Company Number: JP-MERCK-0402USA00961

PATIENT
  Age: 76 Year
  Sex: Male

DRUGS (26)
  1. AMINOPHYLLINE [Suspect]
     Route: 042
     Dates: start: 20040114, end: 20040121
  2. BUFFERIN [Concomitant]
     Route: 048
  3. BEZATOL [Concomitant]
     Route: 048
  4. ODANON [Concomitant]
     Route: 065
  5. MODACIN [Suspect]
     Route: 042
     Dates: start: 20040114, end: 20040118
  6. CLARITHROMYCIN [Suspect]
     Route: 048
     Dates: start: 20040120, end: 20040128
  7. DALACINE [Suspect]
     Route: 042
     Dates: start: 20040119, end: 20040121
  8. DIGOXIN [Concomitant]
     Route: 065
  9. PEPCID RPD [Suspect]
     Route: 048
     Dates: start: 20040123, end: 20040128
  10. DIFLUCAN [Suspect]
     Route: 042
     Dates: start: 20040120, end: 20040123
  11. FAROM [Concomitant]
     Route: 065
  12. GLOBULIN, IMMUNE [Concomitant]
     Route: 065
  13. EUGLUCON [Concomitant]
     Route: 048
  14. CYANOCOBALAMIN [Concomitant]
     Route: 065
  15. MEROPENEM [Suspect]
     Route: 042
     Dates: start: 20040119, end: 20040126
  16. SOLU-MEDROL [Concomitant]
     Route: 065
  17. SELOKEN [Concomitant]
     Route: 065
  18. MEXITIL [Concomitant]
     Route: 065
  19. MINOMYCIN [Suspect]
     Route: 042
     Dates: start: 20040114, end: 20040118
  20. ADALAT [Concomitant]
     Route: 048
  21. PREDNISOLONE [Concomitant]
     Route: 065
  22. BACTRIM [Concomitant]
     Route: 048
     Dates: start: 20040123, end: 20040128
  23. ACECOL [Concomitant]
     Route: 048
  24. SELBEX [Concomitant]
     Route: 048
  25. PANALDINE [Concomitant]
     Route: 048
  26. DIOVAN [Concomitant]
     Route: 048

REACTIONS (3)
  - DYSGEUSIA [None]
  - NEUROPATHY [None]
  - PAROSMIA [None]
